FAERS Safety Report 18641806 (Version 14)
Quarter: 2023Q1

REPORT INFORMATION
  Report Type: Report from Study
  Country: DE (occurrence: DE)
  Receive Date: 20201221
  Receipt Date: 20230327
  Transmission Date: 20230417
  Serious: Yes (Life-Threatening, Hospitalization)
  Sender: FDA-Public Use
  Company Number: NVSC2020DE327611

PATIENT
  Age: 66 Year
  Sex: Male
  Weight: 70.7 kg

DRUGS (19)
  1. MESNA [Suspect]
     Active Substance: MESNA
     Indication: B-cell lymphoma
     Dosage: 1.97 G, ONCE
     Route: 042
     Dates: start: 20200920
  2. IFOSFAMIDE [Suspect]
     Active Substance: IFOSFAMIDE
     Indication: B-cell lymphoma
     Dosage: 9.8 G, CONTINUOUS INFUSION 24H
     Route: 042
     Dates: start: 20200920
  3. CARBOPLATIN [Suspect]
     Active Substance: CARBOPLATIN
     Indication: B-cell lymphoma
     Dosage: 601.8 MG, ONCE
     Route: 058
     Dates: start: 20200808
  4. GEMCITABINE [Suspect]
     Active Substance: GEMCITABINE
     Indication: B-cell lymphoma
     Dosage: 1850 MG, ONCE
     Route: 042
     Dates: start: 20201023
  5. ETOPOSIDE [Suspect]
     Active Substance: ETOPOSIDE
     Indication: B-cell lymphoma
     Dosage: 591 MG, QD
     Route: 042
     Dates: start: 20200919
  6. RITUXIMAB [Suspect]
     Active Substance: RITUXIMAB
     Indication: B-cell lymphoma
     Dosage: 787 MG, ONCE
     Route: 042
     Dates: start: 20200807
  7. CYTARABINE [Suspect]
     Active Substance: CYTARABINE
     Indication: B-cell lymphoma
     Dosage: 8400 MG, QD
     Route: 042
     Dates: start: 20200809
  8. OXALIPLATIN [Suspect]
     Active Substance: OXALIPLATIN
     Indication: Non-Hodgkin^s lymphoma
     Dosage: 185 MG, ONCE
     Route: 042
     Dates: start: 20201023
  9. CYCLOPHOSPHAMIDE [Suspect]
     Active Substance: CYCLOPHOSPHAMIDE
     Indication: Chemotherapy
     Dosage: 1477 MG, ONCE
     Route: 065
     Dates: start: 20201128, end: 20201128
  10. DOXORUBICIN [Suspect]
     Active Substance: DOXORUBICIN
     Indication: Chemotherapy
     Dosage: 98 MG, ONCE
     Route: 065
     Dates: start: 20201128, end: 20201128
  11. VINCRISTINE [Suspect]
     Active Substance: VINCRISTINE
     Indication: Chemotherapy
     Dosage: 2 MG, ONCE
     Route: 065
     Dates: start: 20201128, end: 20201128
  12. NEBIVOLOL [Concomitant]
     Active Substance: NEBIVOLOL
     Indication: Hypertension
     Dosage: UNK
     Route: 065
     Dates: start: 20200812
  13. NEBIVOLOL [Concomitant]
     Active Substance: NEBIVOLOL
     Indication: Left ventricular hypertrophy
     Dosage: UNK
     Route: 065
     Dates: start: 20200827
  14. ESCITALOPRAM [Concomitant]
     Active Substance: ESCITALOPRAM OXALATE
     Indication: Depression
     Dosage: UNK
     Route: 065
     Dates: start: 20200808
  15. BENDAMUSTINE [Concomitant]
     Active Substance: BENDAMUSTINE
     Indication: Chemotherapy
     Dosage: 88 MG, ONCE
     Route: 065
     Dates: start: 20201112, end: 20201112
  16. PREDNISONE [Concomitant]
     Active Substance: PREDNISONE
     Indication: Chemotherapy
     Dosage: 300 MG, QD
     Route: 065
     Dates: start: 20201129, end: 20201201
  17. PIPERACILLIN SODIUM\TAZOBACTAM SODIUM [Concomitant]
     Active Substance: PIPERACILLIN SODIUM\TAZOBACTAM SODIUM
     Indication: Neutropenia
     Dosage: UNK
     Route: 065
     Dates: start: 20201208, end: 20201208
  18. MEROPENEM [Concomitant]
     Active Substance: MEROPENEM
     Indication: Neutropenia
     Dosage: UNK
     Route: 065
     Dates: start: 20201208, end: 20201217
  19. LINEZOLID [Concomitant]
     Active Substance: LINEZOLID
     Indication: Neutropenia
     Dosage: UNK
     Route: 065
     Dates: start: 20201208, end: 20201217

REACTIONS (1)
  - Neutropenic sepsis [Recovered/Resolved]

NARRATIVE: CASE EVENT DATE: 20201208
